FAERS Safety Report 7330095-7 (Version None)
Quarter: 2011Q1

REPORT INFORMATION
  Report Type: 
  Country: None (occurrence: None)
  Receive Date: 20110303
  Receipt Date: 20110221
  Transmission Date: 20110831
  Serious: Yes (Hospitalization, Other)
  Sender: FDA-Public Use
  Company Number: US-ELI_LILLY_AND_COMPANY-US201011004369

PATIENT
  Sex: Male

DRUGS (26)
  1. PLAVIX [Concomitant]
     Indication: MYOCARDIAL INFARCTION
     Dosage: 75 MG, DAILY (1/D)
  2. OXYGEN [Concomitant]
     Dosage: 2 LITER, UNK
  3. VENTOLIN /SCH/ [Concomitant]
     Dosage: UNK, AS NEEDED
  4. VITAMIN D [Concomitant]
     Dosage: 400 MG, DAILY (1/D)
  5. VITAMIN B-12 [Concomitant]
     Dosage: 1500 UG, DAILY (1/D)
  6. METOPROLOL [Concomitant]
     Dosage: 25 MG, 2/D
  7. SIMVASTATIN [Concomitant]
     Dosage: 40 MG, DAILY (1/D)
  8. FORTEO [Suspect]
     Dosage: 20 UG, DAILY (1/D)
  9. FORTEO [Suspect]
     Dosage: 20 UG, DAILY (1/D)
  10. LOVENOX [Concomitant]
     Dosage: UNK, 2/D
  11. OXYCODONE [Concomitant]
     Dosage: 5 MG, AS NEEDED
  12. NYSTATIN [Concomitant]
     Indication: CANDIDIASIS
  13. PREDNISONE [Concomitant]
     Indication: COLITIS ULCERATIVE
     Dosage: 30 MG, UNK
  14. BACTRIM [Concomitant]
     Dosage: UNK, QOD
  15. LASIX [Concomitant]
     Dosage: 20 MG, DAILY (1/D)
  16. WARFARIN [Concomitant]
     Dosage: 5 MG, DAILY (1/D)
  17. ZANTAC [Concomitant]
     Dosage: 300 MG, DAILY (1/D)
  18. CALCIUM WITH VITAMIN D [Concomitant]
     Dosage: UNK, 3/D
  19. COUMADIN [Concomitant]
  20. MAGNESIUM [Concomitant]
     Dosage: 250 MG, DAILY (1/D)
  21. FORTEO [Suspect]
     Indication: OSTEOPOROSIS
     Dosage: 20 UG, DAILY (1/D)
     Dates: start: 20100616
  22. FOLIC ACID [Concomitant]
     Dosage: 400 MG, DAILY (1/D)
  23. LISINOPRIL [Concomitant]
     Indication: BLOOD PRESSURE INCREASED
     Dosage: UNK, AS NEEDED
  24. SPIRIVA [Concomitant]
     Dosage: UNK, DAILY (1/D)
  25. POTASSIUM [Concomitant]
     Dosage: 550 MG, DAILY (1/D)
  26. NITROGLYCERIN [Concomitant]
     Dosage: 0.4 MG, AS NEEDED

REACTIONS (6)
  - DYSPNOEA [None]
  - HEART RATE IRREGULAR [None]
  - CONTUSION [None]
  - HOSPITALISATION [None]
  - CORONARY ARTERY OCCLUSION [None]
  - RIB FRACTURE [None]
